FAERS Safety Report 8542600-3 (Version None)
Quarter: 2012Q3

REPORT INFORMATION
  Report Type: 
  Country: None (occurrence: None)
  Receive Date: 20120726
  Receipt Date: 20120720
  Transmission Date: 20120928
  Serious: Yes (Other)
  Sender: FDA-Public Use
  Company Number: US-AMGEN-USASP2011013329

PATIENT
  Age: 57 Year
  Sex: Female
  Weight: 73 kg

DRUGS (2)
  1. ENBREL [Suspect]
     Indication: RHEUMATOID ARTHRITIS
     Dosage: 50 MG, QWK
     Route: 058
     Dates: start: 20101001, end: 20110501
  2. ENBREL [Suspect]
     Dosage: 50 MG, QWK
     Dates: start: 20101201, end: 20110216

REACTIONS (7)
  - DIARRHOEA [None]
  - SICKLE CELL ANAEMIA WITH CRISIS [None]
  - HAEMATURIA [None]
  - VOMITING [None]
  - NASAL CONGESTION [None]
  - COUGH [None]
  - MYALGIA [None]
